FAERS Safety Report 5124134-1 (Version None)
Quarter: 2006Q4

REPORT INFORMATION
  Report Type: 
  Country: None (occurrence: None)
  Receive Date: 20061010
  Receipt Date: 20060330
  Transmission Date: 20070319
  Serious: No
  Sender: FDA-Public Use
  Company Number: US-BRISTOL-MYERS SQUIBB COMPANY-13331665

PATIENT
  Age: 62 Year
  Sex: Female
  Weight: 58 kg

DRUGS (4)
  1. AVAPRO [Suspect]
     Dates: start: 20060301
  2. ATENOLOL [Concomitant]
  3. SPIRONOLACTONE [Concomitant]
  4. DILTIAZEM HCL [Concomitant]

REACTIONS (2)
  - ANGINA PECTORIS [None]
  - RESPIRATORY RATE INCREASED [None]
